FAERS Safety Report 24736402 (Version 1)
Quarter: 2024Q4

REPORT INFORMATION
  Report Type: Spontaneous
  Country: ES (occurrence: ES)
  Receive Date: 20241216
  Receipt Date: 20241216
  Transmission Date: 20250114
  Serious: Yes (Hospitalization, Disabling)
  Sender: AMGEN
  Company Number: None

PATIENT
  Age: 93 Year
  Sex: Female

DRUGS (1)
  1. PROLIA [Suspect]
     Active Substance: DENOSUMAB
     Indication: Osteoporosis
     Dosage: 1 INJECTION EVERY 6 MONTHS
     Route: 058
     Dates: start: 20170802, end: 20230401

REACTIONS (3)
  - Hip fracture [Recovered/Resolved]
  - Rebound effect [Recovered/Resolved]
  - Medication error [Recovered/Resolved]

NARRATIVE: CASE EVENT DATE: 20240524
